APPROVED DRUG PRODUCT: DEPO-TESTOSTERONE
Active Ingredient: TESTOSTERONE CYPIONATE
Strength: 200MG/ML
Dosage Form/Route: INJECTABLE;INJECTION
Application: A085635 | Product #003 | TE Code: AO
Applicant: PFIZER INC
Approved: Approved Prior to Jan 1, 1982 | RLD: Yes | RS: Yes | Type: RX